FAERS Safety Report 5453972-0 (Version None)
Quarter: 2007Q3

REPORT INFORMATION
  Report Type: 
  Country: None (occurrence: None)
  Receive Date: 20070917
  Receipt Date: 20070228
  Transmission Date: 20080115
  Serious: Yes (Other)
  Sender: FDA-Public Use
  Company Number: US-ASTRAZENECA-2005UW13301

PATIENT
  Sex: Male
  Weight: 284 kg

DRUGS (8)
  1. SEROQUEL [Suspect]
     Indication: BIPOLAR DISORDER
     Route: 048
     Dates: start: 19981208, end: 20000708
  2. ABILIFY [Concomitant]
     Dates: start: 20040101
  3. GEODON [Concomitant]
     Dates: start: 20020101
  4. HALDOL [Concomitant]
     Dates: start: 20000101
  5. ZYPREXA [Concomitant]
     Dates: start: 19970101, end: 19980101
  6. AMPHETAMINE [Concomitant]
  7. OPIUM [Concomitant]
  8. CANNABIS [Concomitant]

REACTIONS (2)
  - DIABETES MELLITUS [None]
  - TARDIVE DYSKINESIA [None]
